FAERS Safety Report 7358945-9 (Version None)
Quarter: 2011Q1

REPORT INFORMATION
  Report Type: 
  Country: None (occurrence: None)
  Receive Date: 20110317
  Receipt Date: 20110310
  Transmission Date: 20110831
  Serious: Yes (Hospitalization)
  Sender: FDA-Public Use
  Company Number: US-ELI_LILLY_AND_COMPANY-US201103004163

PATIENT
  Age: 63 Year
  Sex: Female

DRUGS (3)
  1. LAMICTAL [Concomitant]
  2. ZYPREXA [Suspect]
     Indication: BIPOLAR DISORDER
     Dosage: 20 MG, UNK
     Dates: start: 20100301
  3. SUBOXONE [Concomitant]

REACTIONS (1)
  - LEUKOPENIA [None]
